FAERS Safety Report 7190623-1 (Version None)
Quarter: 2010Q4

REPORT INFORMATION
  Report Type: 
  Country: None (occurrence: None)
  Receive Date: 20101223
  Receipt Date: 20101216
  Transmission Date: 20110411
  Serious: Yes (Other)
  Sender: FDA-Public Use
  Company Number: US-JNJFOC-20101200833

PATIENT
  Sex: Female

DRUGS (5)
  1. ULTRAM ER [Suspect]
     Indication: PAIN
     Dosage: 1-2 TABLETS
     Route: 048
  2. POTASSIUM [Concomitant]
  3. ACIDOPHILUS [Concomitant]
  4. LEVODOPA [Concomitant]
  5. ADDERALL 10 [Concomitant]

REACTIONS (1)
  - CEREBROVASCULAR ACCIDENT [None]
